FAERS Safety Report 25586961 (Version 1)
Quarter: 2025Q3

REPORT INFORMATION
  Report Type: Spontaneous
  Country: US (occurrence: US)
  Receive Date: 20250721
  Receipt Date: 20250721
  Transmission Date: 20251020
  Serious: No
  Sender: Phathom Pharmaceuticals
  Company Number: US-PHATHOM PHARMACEUTICALS INC.-2025PHT01455

PATIENT
  Sex: Female

DRUGS (1)
  1. VOQUEZNA TRIPLE PAK [Suspect]
     Active Substance: AMOXICILLIN\CLARITHROMYCIN\VONOPRAZAN FUMARATE
     Indication: Helicobacter infection
     Route: 048
     Dates: start: 2025

REACTIONS (2)
  - Throat irritation [Recovered/Resolved]
  - Headache [Recovered/Resolved]

NARRATIVE: CASE EVENT DATE: 20250307
